FAERS Safety Report 20997767 (Version 2)
Quarter: 2022Q3

REPORT INFORMATION
  Report Type: Spontaneous
  Country: DE (occurrence: DE)
  Receive Date: 20220623
  Receipt Date: 20220719
  Transmission Date: 20221027
  Serious: Yes (Other)
  Sender: FDA-Public Use
  Company Number: DE-002147023-NVSC2022DE105399

PATIENT
  Age: 50 Year
  Sex: Male

DRUGS (1)
  1. AIMOVIG [Suspect]
     Active Substance: ERENUMAB-AOOE
     Indication: Migraine with aura
     Dosage: 70 MG
     Route: 065
     Dates: start: 20220301, end: 20220329

REACTIONS (6)
  - Rectal tenesmus [Unknown]
  - Gastrointestinal motility disorder [Unknown]
  - Gastrointestinal sounds abnormal [Unknown]
  - Intestinal obstruction [Recovered/Resolved]
  - Defaecation disorder [Recovered/Resolved]
  - Constipation [Recovered/Resolved]

NARRATIVE: CASE EVENT DATE: 20220301
